FAERS Safety Report 10609475 (Version 4)
Quarter: 2015Q2

REPORT INFORMATION
  Report Type: Report from Study
  Country: BR (occurrence: BR)
  Receive Date: 20141126
  Receipt Date: 20150529
  Transmission Date: 20150821
  Serious: Yes (Other)
  Sender: FDA-Public Use
  Company Number: PHHY2014BR152130

PATIENT
  Sex: Female

DRUGS (7)
  1. PROGRAF [Concomitant]
     Active Substance: TACROLIMUS\TACROLIMUS ANHYDROUS
     Indication: IMMUNOSUPPRESSION
     Dosage: 1 DF, BID
     Route: 065
     Dates: start: 2006
  2. INTERFERON [Suspect]
     Active Substance: INTERFERON
     Indication: PRODUCT USED FOR UNKNOWN INDICATION
     Route: 065
     Dates: start: 2002, end: 2005
  3. SANDOSTATIN LAR DEPOT [Suspect]
     Active Substance: OCTREOTIDE ACETATE
     Indication: NEUROENDOCRINE TUMOUR
     Dosage: 20 MG (1 APPLICATION), EVERY 30 DAYS
     Route: 030
     Dates: start: 2002, end: 2003
  4. PURAN [Concomitant]
     Active Substance: LEVOTHYROXINE SODIUM
     Indication: IODINE UPTAKE ABNORMAL
     Dosage: 125 MG, QD
     Route: 065
     Dates: start: 2005
  5. SANDOSTATIN LAR DEPOT [Suspect]
     Active Substance: OCTREOTIDE ACETATE
     Indication: HEPATIC NEOPLASM
     Dosage: 30 MG, EVERY 30 DAYS
     Route: 030
     Dates: start: 2003, end: 200605
  6. SANDOSTATIN LAR DEPOT [Suspect]
     Active Substance: OCTREOTIDE ACETATE
     Dosage: 20 MG (1 INJECTION), EVERY 28 DAYS
     Route: 030
     Dates: start: 2003, end: 2006
  7. SANDOSTATIN LAR DEPOT [Suspect]
     Active Substance: OCTREOTIDE ACETATE
     Dosage: UNK
     Route: 030
     Dates: start: 2014

REACTIONS (14)
  - Cryptococcosis [Recovered/Resolved with Sequelae]
  - Bone neoplasm [Unknown]
  - Back pain [Unknown]
  - Bile duct obstruction [Unknown]
  - Metastases to lung [Not Recovered/Not Resolved]
  - Metastases to bone [Not Recovered/Not Resolved]
  - Off label use [Unknown]
  - Renal disorder [Unknown]
  - Malignant neoplasm progression [Unknown]
  - Hypothyroidism [Unknown]
  - Metastases to liver [Not Recovered/Not Resolved]
  - Metastases to bone [Recovered/Resolved]
  - Adrenal disorder [Not Recovered/Not Resolved]
  - Metastases to the mediastinum [Unknown]

NARRATIVE: CASE EVENT DATE: 2006
